FAERS Safety Report 5989922-8 (Version None)
Quarter: 2008Q4

REPORT INFORMATION
  Report Type: 
  Country: None (occurrence: None)
  Receive Date: 20081210
  Receipt Date: 20081124
  Transmission Date: 20090506
  Serious: Yes (Hospitalization)
  Sender: FDA-Public Use
  Company Number: 6044453

PATIENT
  Age: 46 Year
  Sex: Male

DRUGS (2)
  1. NOVOTHYRAL (100 MICROGRAM, TABLET) (LEVOTHRYOXINE SODIUM, LIOTHYRONINE [Suspect]
     Indication: BASEDOW'S DISEASE
     Dosage: 100 MCG (100 MCG,1 IN 1 D)
     Route: 048
     Dates: start: 20070901, end: 20080501
  2. L-THYROXIN (150  MICROGRAM) (LEVOTHYROXINE) [Concomitant]

REACTIONS (1)
  - SHOCK [None]
